FAERS Safety Report 5124015-3 (Version None)
Quarter: 2006Q3

REPORT INFORMATION
  Report Type: 
  Country: None (occurrence: None)
  Receive Date: 20060808
  Receipt Date: 20050823
  Transmission Date: 20061208
  Serious: Yes (Hospitalization)
  Sender: FDA-Public Use
  Company Number: 200516347US

PATIENT
  Age: 67 Year
  Sex: Male

DRUGS (24)
  1. LASIX [Suspect]
     Dosage: 250 MG
  2. PROCRIT [Concomitant]
  3. ISOSORBIDE [Concomitant]
  4. POTASSIUM CHLORIDE (D-KUR) [Concomitant]
  5. LANTUS [Concomitant]
  6. MAGNESIUM OXIDE [Concomitant]
  7. NITROGLYCERIN [Concomitant]
  8. PLAVIX [Concomitant]
  9. PEPCID [Concomitant]
  10. SYNTHROID [Concomitant]
  11. TEMAZEPAM (RESTORIL) [Concomitant]
  12. SIMVASTATIN [Concomitant]
  13. INSULIN HUMAN, INSULIN ISOPHANE, HUMAN BIOSYNTHETIC (HUMULIN) [Concomitant]
  14. HYDROXYZIDE HYDROCHLORIDE (ATARAX [Concomitant]
  15. ATENOLOL [Concomitant]
  16. GLIMEPIRDINE (AMARYL) [Concomitant]
  17. DILTIAZEM HCL [Concomitant]
  18. ASPIRIN [Concomitant]
  19. BRIMONIDINE TARTRATE [Concomitant]
  20. PARACETAMOL, DEXTROPROPOXYPHENE NAPSILATE (DARVOCET-N) [Concomitant]
  21. ETHACRYNIC ACID [Concomitant]
  22. FERROUS SULFATE TAB [Concomitant]
  23. GEMFIBROZIL [Concomitant]
  24. CALCIUM CARBONATE (TUMS) [Concomitant]

REACTIONS (1)
  - HYPERSENSITIVITY [None]
